FAERS Safety Report 5525661-5 (Version None)
Quarter: 2007Q4

REPORT INFORMATION
  Report Type: 
  Country: None (occurrence: None)
  Receive Date: 20071126
  Receipt Date: 20071113
  Transmission Date: 20080405
  Serious: Yes (Other)
  Sender: FDA-Public Use
  Company Number: JP-AMGEN-US202808

PATIENT
  Sex: Female
  Weight: 40 kg

DRUGS (8)
  1. ENBREL [Suspect]
     Indication: RHEUMATOID ARTHRITIS
     Route: 058
     Dates: start: 20050523, end: 20061013
  2. TAKEPRON [Concomitant]
     Indication: PROPHYLAXIS
     Route: 048
     Dates: start: 20040119
  3. ACTARIT [Concomitant]
     Indication: RHEUMATOID ARTHRITIS
     Dosage: UNKNOWN
     Route: 048
  4. ACTARIT [Concomitant]
     Route: 048
     Dates: start: 20040119
  5. FOLIAMIN [Concomitant]
     Indication: PROPHYLAXIS
     Route: 048
     Dates: start: 20040119
  6. RHEUMATREX [Concomitant]
     Indication: RHEUMATOID ARTHRITIS
     Route: 048
     Dates: start: 20040119, end: 20060118
  7. DIDRONEL [Concomitant]
     Indication: OSTEOPOROSIS
     Route: 048
     Dates: start: 20040119, end: 20070701
  8. MAGNESIUM OXIDE [Concomitant]
     Indication: CONSTIPATION
     Route: 048
     Dates: start: 20040119

REACTIONS (1)
  - PULMONARY TUBERCULOSIS [None]
